FAERS Safety Report 4726926-7 (Version None)
Quarter: 2005Q3

REPORT INFORMATION
  Report Type: 
  Country: None (occurrence: None)
  Receive Date: 20050725
  Receipt Date: 20050725
  Transmission Date: 20060218
  Serious: Yes (Disabling)
  Sender: FDA-Public Use
  Company Number: None

PATIENT
  Age: 51 Year
  Sex: Female
  Weight: 54.4316 kg

DRUGS (2)
  1. REBETOL [Suspect]
     Indication: HEPATITIS C
     Dosage: 200MG  ONCE WEEKLY INTRAVENOUS
     Route: 042
     Dates: start: 20020101, end: 20021221
  2. INTERFERON ALFA-2B  SCHERING [Suspect]
     Dosage: ONCE WEEKLY INTRAVENOUS
     Route: 042
     Dates: start: 20020101, end: 20021221

REACTIONS (4)
  - DEAFNESS [None]
  - HYPOTHYROIDISM [None]
  - OSTEOPOROSIS [None]
  - SARCOIDOSIS [None]
